FAERS Safety Report 16814226 (Version 1)
Quarter: 2019Q3

REPORT INFORMATION
  Report Type: Spontaneous
  Country: US (occurrence: US)
  Receive Date: 20190917
  Receipt Date: 20190917
  Transmission Date: 20191005
  Serious: No
  Sender: FDA-Public Use
  Company Number: JP-ALLERGAN-1923325US

PATIENT
  Sex: Female
  Weight: 58.97 kg

DRUGS (5)
  1. AMIKACIN. [Concomitant]
     Active Substance: AMIKACIN
     Route: 042
  2. TYGACIL [Concomitant]
     Active Substance: TIGECYCLINE
     Route: 042
  3. CARAFATE [Suspect]
     Active Substance: SUCRALFATE
     Indication: GASTROOESOPHAGEAL REFLUX DISEASE
     Dosage: 100 MG, QID
     Route: 048
  4. ZYVOX [Concomitant]
     Active Substance: LINEZOLID
     Indication: LUNG INFECTION
     Dosage: 600 MG
     Route: 048
     Dates: start: 201905
  5. PROTONIX [Concomitant]
     Active Substance: PANTOPRAZOLE SODIUM
     Dosage: UNK

REACTIONS (1)
  - Off label use [Unknown]
